FAERS Safety Report 5507420-2 (Version None)
Quarter: 2007Q4

REPORT INFORMATION
  Report Type: 
  Country: None (occurrence: None)
  Receive Date: 20071024
  Receipt Date: 20070515
  Transmission Date: 20080405
  Serious: Yes (Other)
  Sender: FDA-Public Use
  Company Number: US-JNJFOC-20070301405

PATIENT
  Age: 60 Year
  Sex: Female

DRUGS (2)
  1. FLEXERIL [Suspect]
     Indication: BACK PAIN
     Dosage: 2.5 MG, 1 IN 1 AS NECESSARY, ORAL ; 5 MG, 1 IN 1 TOTAL, ORAL
     Route: 048
     Dates: start: 20061001
  2. FLEXERIL [Suspect]
     Indication: BACK PAIN
     Dosage: 2.5 MG, 1 IN 1 AS NECESSARY, ORAL ; 5 MG, 1 IN 1 TOTAL, ORAL
     Route: 048
     Dates: start: 20070304

REACTIONS (2)
  - INCORRECT DOSE ADMINISTERED [None]
  - SYNCOPE [None]
